FAERS Safety Report 4662613-1 (Version None)
Quarter: 2005Q2

REPORT INFORMATION
  Report Type: 
  Country: None (occurrence: None)
  Receive Date: 20050516
  Receipt Date: 20050117
  Transmission Date: 20051028
  Serious: Yes (Other)
  Sender: FDA-Public Use
  Company Number: 2005UW00847

PATIENT
  Age: 68 Year
  Sex: Female

DRUGS (1)
  1. CRESTOR [Suspect]
     Route: 048
     Dates: start: 20040225, end: 20041119

REACTIONS (3)
  - AMYOTROPHIC LATERAL SCLEROSIS [None]
  - DYSARTHRIA [None]
  - SWOLLEN TONGUE [None]
